FAERS Safety Report 19241795 (Version 1)
Quarter: 2021Q2

REPORT INFORMATION
  Report Type: Spontaneous
  Country: US (occurrence: US)
  Receive Date: 20210511
  Receipt Date: 20210511
  Transmission Date: 20210717
  Serious: Yes (Disabling)
  Sender: FDA-Public Use
  Company Number: None

PATIENT
  Age: 31 Year
  Sex: Male
  Weight: 78.75 kg

DRUGS (1)
  1. DOTAREM [Suspect]
     Active Substance: GADOTERATE MEGLUMINE
     Indication: MAGNETIC RESONANCE IMAGING
     Dosage: ?          QUANTITY:17 ML;?
     Route: 042
     Dates: start: 20201016

REACTIONS (5)
  - Electric shock sensation [None]
  - Arthralgia [None]
  - Depressed level of consciousness [None]
  - Skin burning sensation [None]
  - Bone pain [None]

NARRATIVE: CASE EVENT DATE: 20201016
